FAERS Safety Report 10435854 (Version 1)
Quarter: 2014Q3

REPORT INFORMATION
  Report Type: Spontaneous
  Country: US (occurrence: US)
  Receive Date: 20140908
  Receipt Date: 20140908
  Transmission Date: 20150326
  Serious: Yes (Death, Hospitalization)
  Sender: FDA-Public Use
  Company Number: US-JNJFOC-20140826530

PATIENT

DRUGS (1)
  1. NESIRITIDE [Suspect]
     Active Substance: NESIRITIDE
     Indication: CARDIAC FAILURE ACUTE
     Dosage: AVERAGE DOSE OF 0.01 MCG/KG/MIN AND A BOLUS DOSE OF 2 MCG/KG.
     Route: 065

REACTIONS (2)
  - Hypotension [Unknown]
  - Renal impairment [Fatal]
